FAERS Safety Report 24715860 (Version 4)
Quarter: 2025Q1

REPORT INFORMATION
  Report Type: Report from Study
  Country: JP (occurrence: JP)
  Receive Date: 20241210
  Receipt Date: 20250115
  Transmission Date: 20250409
  Serious: Yes (Hospitalization)
  Sender: ABBVIE
  Company Number: JP-ABBVIE-5516194

PATIENT
  Age: 74 Year
  Sex: Female

DRUGS (1)
  1. VYALEV [Suspect]
     Active Substance: FOSCARBIDOPA\FOSLEVODOPA
     Indication: Parkinson^s disease
     Route: 058
     Dates: start: 20231104

REACTIONS (21)
  - Loss of consciousness [Unknown]
  - Dysphonia [Unknown]
  - Dyskinesia [Unknown]
  - Infusion site haemorrhage [Unknown]
  - Parkinson^s disease [Unknown]
  - Musculoskeletal stiffness [Unknown]
  - Movement disorder [Unknown]
  - Gait disturbance [Unknown]
  - Feeling abnormal [Unknown]
  - Mobility decreased [Unknown]
  - Malaise [Unknown]
  - Drug ineffective [Unknown]
  - Anxiety [Unknown]
  - Nausea [Unknown]
  - Posture abnormal [Not Recovered/Not Resolved]
  - On and off phenomenon [Unknown]
  - Malaise [Unknown]
  - Malaise [Unknown]
  - On and off phenomenon [Recovered/Resolved]
  - Mobility decreased [Unknown]
  - Akinesia [Unknown]

NARRATIVE: CASE EVENT DATE: 20240113
